FAERS Safety Report 4848677-0 (Version None)
Quarter: 2005Q4

REPORT INFORMATION
  Report Type: 
  Country: None (occurrence: None)
  Receive Date: 20051208
  Receipt Date: 20051205
  Transmission Date: 20060501
  Serious: Yes (Other)
  Sender: FDA-Public Use
  Company Number: DE-JNJFOC-20051201039

PATIENT

DRUGS (5)
  1. CISAPRIDE [Suspect]
     Dosage: 4X 0.2 MG/KG DISSOLVED IN 1 ML OF 5% GLUCOSE SOLUTION VIA GASTRIC TUBE 30 MIN PRIOR TO MEALS.
     Route: 050
  2. THEOPHYLLINE [Concomitant]
     Indication: BRADYCARDIA
  3. THEOPHYLLINE [Concomitant]
  4. DOXAPRAM [Concomitant]
     Indication: BRADYCARDIA
  5. DOXAPRAM [Concomitant]

REACTIONS (1)
  - SUPRAVENTRICULAR TACHYCARDIA [None]
